FAERS Safety Report 8809784 (Version 4)
Quarter: 2013Q2

REPORT INFORMATION
  Report Type: Report from Study
  Country: DE (occurrence: DE)
  Receive Date: 20120926
  Receipt Date: 20130521
  Transmission Date: 20140414
  Serious: Yes (Hospitalization)
  Sender: FDA-Public Use
  Company Number: DE-ABBOTT-12P-062-0981674-00

PATIENT
  Age: 67 Year
  Sex: Male
  Weight: 66 kg

DRUGS (3)
  1. HUMIRA [Suspect]
     Indication: PRODUCT USED FOR UNKNOWN INDICATION
     Dosage: FIRST 160 MG, THEN 80 MG
     Route: 058
     Dates: start: 20120613, end: 20120808
  2. HUMIRA [Suspect]
     Route: 058
     Dates: start: 201208, end: 201302
  3. HUMIRA [Suspect]
     Route: 058
     Dates: start: 201303

REACTIONS (3)
  - Crohn^s disease [Recovered/Resolved]
  - Intestinal stenosis [Recovered/Resolved]
  - Intestinal fistula [Recovered/Resolved]
